FAERS Safety Report 10004741 (Version 4)
Quarter: 2014Q2

REPORT INFORMATION
  Report Type: Report from Study
  Country: US (occurrence: US)
  Receive Date: 20140312
  Receipt Date: 20140424
  Transmission Date: 20141212
  Serious: Yes (Hospitalization)
  Sender: FDA-Public Use
  Company Number: US-JNJFOC-20140304513

PATIENT
  Age: 14 Year
  Sex: Male

DRUGS (7)
  1. REMICADE [Suspect]
     Indication: COLITIS
     Route: 042
     Dates: start: 20090701
  2. REMICADE [Suspect]
     Indication: COLITIS
     Route: 042
     Dates: start: 20040826
  3. NALOXONE [Concomitant]
     Route: 065
  4. MORPHINE [Concomitant]
     Route: 065
  5. ZOFRAN [Concomitant]
     Route: 065
  6. LOMOTIL [Concomitant]
     Route: 065
  7. METHOTREXATE [Concomitant]
     Route: 065

REACTIONS (1)
  - Pouchitis [Recovered/Resolved]
